FAERS Safety Report 9904631 (Version 2)
Quarter: 2014Q2

REPORT INFORMATION
  Report Type: Spontaneous
  Country: US (occurrence: US)
  Receive Date: 20140218
  Receipt Date: 20140408
  Transmission Date: 20141212
  Serious: Yes (Death)
  Sender: FDA-Public Use
  Company Number: US-ASTELLAS-2014US001603

PATIENT
  Age: 61 Year
  Sex: Female

DRUGS (14)
  1. PROGRAF [Suspect]
     Indication: RENAL TRANSPLANT
     Dosage: 1 MG, BID
     Route: 048
     Dates: start: 20120618
  2. BAYER ASPIRIN [Concomitant]
     Indication: PRODUCT USED FOR UNKNOWN INDICATION
     Dosage: 81 MG, UID/QD
     Route: 048
     Dates: start: 20131023
  3. FUROSEMIDE [Concomitant]
     Indication: PRODUCT USED FOR UNKNOWN INDICATION
     Dosage: 40 MG, UID/QD
     Route: 048
     Dates: start: 20131023
  4. LIPITOR [Concomitant]
     Indication: PRODUCT USED FOR UNKNOWN INDICATION
     Dosage: 10 MG, UID/QD
     Route: 048
     Dates: start: 20120430
  5. LOSARTAN [Concomitant]
     Indication: PRODUCT USED FOR UNKNOWN INDICATION
     Dosage: 100 MG, UID/QD
     Route: 048
     Dates: start: 20130814
  6. METOLAZONE [Concomitant]
     Indication: PRODUCT USED FOR UNKNOWN INDICATION
     Dosage: 5 MG, 3XWEEKLY
     Route: 048
     Dates: start: 20131023
  7. METOPROLOL SUCCINATE [Concomitant]
     Indication: PRODUCT USED FOR UNKNOWN INDICATION
     Dosage: 25 MG, UID/QD, 24 HR
     Route: 048
     Dates: start: 20131023
  8. MULTAQ [Concomitant]
     Indication: PRODUCT USED FOR UNKNOWN INDICATION
     Dosage: 400 MG, BID
     Route: 048
     Dates: start: 20131023
  9. MYFORTIC [Concomitant]
     Indication: PRODUCT USED FOR UNKNOWN INDICATION
     Dosage: 360 MG, BID
     Route: 048
     Dates: start: 20120430
  10. OMEPRAZOLE [Concomitant]
     Indication: PRODUCT USED FOR UNKNOWN INDICATION
     Dosage: 20 MG, UID/QD
     Route: 048
     Dates: start: 20120430
  11. PREDNISONE [Concomitant]
     Indication: PRODUCT USED FOR UNKNOWN INDICATION
     Dosage: 5 MG, UID/QD
     Route: 048
     Dates: start: 20120430
  12. VENTOLIN HFA [Concomitant]
     Indication: PRODUCT USED FOR UNKNOWN INDICATION
     Dosage: 90 UG, UID/QD
     Route: 055
     Dates: start: 20131023
  13. WARFARIN [Concomitant]
     Indication: PRODUCT USED FOR UNKNOWN INDICATION
     Dosage: 2.5 MG, UID/QD
     Route: 048
     Dates: start: 20120430
  14. ZEMPLAR [Concomitant]
     Indication: PRODUCT USED FOR UNKNOWN INDICATION
     Dosage: 1 UG, UID/QD
     Route: 048
     Dates: start: 20130121

REACTIONS (1)
  - Acute myocardial infarction [Fatal]
